FAERS Safety Report 4526783-8 (Version None)
Quarter: 2004Q4

REPORT INFORMATION
  Report Type: 
  Country: None (occurrence: None)
  Receive Date: 20041213
  Receipt Date: 20041201
  Transmission Date: 20050328
  Serious: Yes (Death, Hospitalization)
  Sender: FDA-Public Use
  Company Number: JP-2004-031448

PATIENT
  Age: 19 Year
  Sex: Male
  Weight: 58 kg

DRUGS (14)
  1. FLUDARA [Suspect]
     Indication: STEM CELL TRANSPLANT
     Dosage: 54 MG, 1X/DAY, INTRAVENOUS
     Route: 042
     Dates: start: 20040521, end: 20040525
  2. THIOTEPA [Concomitant]
  3. ANTITHYMOCYTE IMMUNOGLOBULIN (RABBIT) (ANTITHYMOCYTE IMMUNOGLOBULIN (R [Concomitant]
  4. SANDIMMUNE [Concomitant]
  5. NEORAL [Concomitant]
  6. DIFLUCAN (FLUCONAZOLE) CAPSULE [Concomitant]
  7. ZANTAC [Concomitant]
  8. BAKTAR TABLET [Concomitant]
  9. CARBENIN (BETAMIPRON, PANIPENEM) [Concomitant]
  10. CRAVIT (LEVOFLOXACIN) TABLET [Concomitant]
  11. ISODINE (POVIDONE-IODINE) [Concomitant]
  12. MUCOSTA (REBAMIPIDE) TABLET [Concomitant]
  13. MUCODYNE (CARBOCISTEINE) TABLET [Concomitant]
  14. VEEN-F (CALCIUM CHLORIDE ANHYDROUS, SODIUM ACETATE, MAGNESIUM CHLORIDE [Concomitant]

REACTIONS (12)
  - ACUTE LYMPHOCYTIC LEUKAEMIA [None]
  - GRAFT VERSUS HOST DISEASE [None]
  - HEPATIC FAILURE [None]
  - HEPATITIS ACUTE [None]
  - HEPATITIS FULMINANT [None]
  - IMMUNE SYSTEM DISORDER [None]
  - LARYNGOPHARYNGITIS [None]
  - LYMPHOCYTE MORPHOLOGY ABNORMAL [None]
  - PLATELET COUNT DECREASED [None]
  - THERAPY NON-RESPONDER [None]
  - VIRAL INFECTION [None]
  - WHITE BLOOD CELL COUNT DECREASED [None]
